FAERS Safety Report 6361785-0 (Version None)
Quarter: 2009Q3

REPORT INFORMATION
  Report Type: 
  Country: None (occurrence: None)
  Receive Date: 20090918
  Receipt Date: 20090909
  Transmission Date: 20100115
  Serious: Yes (Other)
  Sender: FDA-Public Use
  Company Number: US-AMGEN-QUU355044

PATIENT
  Age: 57 Year
  Sex: Female
  Weight: 81.7 kg

DRUGS (2)
  1. NEULASTA [Suspect]
     Indication: CHEMOTHERAPY
     Route: 065
  2. GEMCITABINE [Concomitant]

REACTIONS (7)
  - ANGIOEDEMA [None]
  - ERYTHEMA [None]
  - FACE OEDEMA [None]
  - LIP OEDEMA [None]
  - LOCALISED OEDEMA [None]
  - OEDEMA [None]
  - PERIORBITAL OEDEMA [None]
